FAERS Safety Report 10841564 (Version 1)
Quarter: 2015Q1

REPORT INFORMATION
  Report Type: Spontaneous
  Country: LB (occurrence: LB)
  Receive Date: 20150220
  Receipt Date: 20150220
  Transmission Date: 20150721
  Serious: Yes (Death)
  Sender: FDA-Public Use
  Company Number: LB-EUSA PHARMA-2015-LB-002406

PATIENT
  Age: 76 Year
  Sex: Female

DRUGS (1)
  1. ASPARAGINASE (UNSPECIFIED) [Suspect]
     Active Substance: ASPARAGINASE
     Indication: ACUTE LYMPHOCYTIC LEUKAEMIA

REACTIONS (2)
  - Hepatotoxicity [None]
  - Hepatic steatosis [Fatal]
